FAERS Safety Report 11627777 (Version 1)
Quarter: 2015Q4

REPORT INFORMATION
  Report Type: Spontaneous
  Country: None (occurrence: None)
  Receive Date: 20151013
  Receipt Date: 20151013
  Transmission Date: 20160304
  Serious: Yes (Death)
  Sender: FDA-Public Use
  Company Number: None

PATIENT
  Age: 79 Year
  Sex: Female
  Weight: 70 kg

DRUGS (8)
  1. TRIMEBUTINE [Concomitant]
     Active Substance: TRIMEBUTINE
  2. XARELTO [Suspect]
     Active Substance: RIVAROXABAN
     Indication: ATRIAL FIBRILLATION
     Dosage: ONE PILL
     Route: 048
     Dates: start: 20150701, end: 20151009
  3. AMIODARONE [Concomitant]
     Active Substance: AMIODARONE
  4. TELMISARTAN. [Concomitant]
     Active Substance: TELMISARTAN
  5. BETOPROLOL [Concomitant]
  6. MEMANTINA [Concomitant]
     Active Substance: MEMANTINE HYDROCHLORIDE
  7. SERTRALINE [Concomitant]
     Active Substance: SERTRALINE HYDROCHLORIDE
  8. TRAZODONE [Concomitant]
     Active Substance: TRAZODONE HYDROCHLORIDE

REACTIONS (1)
  - Haemorrhage intracranial [None]

NARRATIVE: CASE EVENT DATE: 20151009
